FAERS Safety Report 7687033 (Version 2)
Quarter: 2012Q4

REPORT INFORMATION
  Report Type: Spontaneous
  Country: NL (occurrence: None)
  Receive Date: 20101103
  Receipt Date: 20120926
  Transmission Date: 20130627
  Serious: Yes (Hospitalization, Other)
  Sender: FDA-Public Use
  Company Number: 2010AP002234

PATIENT
  Age: 81 Year
  Sex: Male

DRUGS (7)
  1. LISINOPRIL [Suspect]
     Dosage: 20 MG;
  2. DICLOFENAC SODIUM [Suspect]
     Dosage: 50 MG;
  3. ASPIRIN [Suspect]
     Dosage: 100 MG;
  4. AMLODIPINE [Concomitant]
  5. ATENOLOL [Concomitant]
  6. CHLORTALIDONE (CHLORTALIDONE) [Concomitant]
  7. OMEPRAZOLE [Concomitant]

REACTIONS (7)
  - RENAL FAILURE ACUTE [None]
  - HYPERKALAEMIA [None]
  - BLOOD PRESSURE DIASTOLIC DECREASED [None]
  - HEART RATE DECREASED [None]
  - DEHYDRATION [None]
  - GASTROENTERITIS [None]
  - OEDEMA PERIPHERAL [None]
